FAERS Safety Report 6372908-1 (Version None)
Quarter: 2009Q3

REPORT INFORMATION
  Report Type: 
  Country: None (occurrence: None)
  Receive Date: 20090924
  Receipt Date: 20081119
  Transmission Date: 20100115
  Serious: Yes (Other)
  Sender: FDA-Public Use
  Company Number: US-ASTRAZENECA-2008UW25963

PATIENT
  Age: 13 Year
  Sex: Female

DRUGS (5)
  1. SEROQUEL [Suspect]
     Indication: AFFECTIVE DISORDER
     Route: 048
  2. SEROQUEL [Suspect]
     Route: 048
  3. DIVALPROATE [Concomitant]
     Indication: CONVULSION
  4. DIVALPROATE [Concomitant]
     Dosage: DECREASED DOSE
  5. DIVALPROATE [Concomitant]
     Dosage: INCREASED DOSE

REACTIONS (1)
  - CONVULSION [None]
